FAERS Safety Report 17003357 (Version 1)
Quarter: 2019Q4

REPORT INFORMATION
  Report Type: Spontaneous
  Country: FR (occurrence: FR)
  Receive Date: 20191107
  Receipt Date: 20191107
  Transmission Date: 20200122
  Serious: Yes (Hospitalization)
  Sender: FDA-Public Use
  Company Number: FR-TEVA-2019-FR-1131767

PATIENT
  Age: 38 Year
  Sex: Male
  Weight: 83 kg

DRUGS (1)
  1. IBUPROFENE [Suspect]
     Active Substance: IBUPROFEN
     Indication: TOOTHACHE
     Route: 048
     Dates: end: 20190809

REACTIONS (1)
  - Cellulitis [Recovered/Resolved]

NARRATIVE: CASE EVENT DATE: 20190810
